FAERS Safety Report 18540523 (Version 1)
Quarter: 2020Q4

REPORT INFORMATION
  Report Type: Spontaneous
  Country: US (occurrence: US)
  Receive Date: 20201124
  Receipt Date: 20201124
  Transmission Date: 20210114
  Serious: Yes (Death)
  Sender: FDA-Public Use
  Company Number: US-PFIZER INC-2020047708

PATIENT
  Age: 72 Year
  Sex: Female

DRUGS (1)
  1. SUTENT [Suspect]
     Active Substance: SUNITINIB MALATE
     Indication: RENAL CANCER METASTATIC
     Dosage: 25 MG, CYCLIC(28 DAYS SUPPLY. DIRECTIONS: 25 MG  TAKE 1 CAPSULE DAILY FOR 4 WEEKS)

REACTIONS (2)
  - Death [Fatal]
  - Off label use [Unknown]
